FAERS Safety Report 18143778 (Version 1)
Quarter: 2020Q3

REPORT INFORMATION
  Report Type: Spontaneous
  Country: BR (occurrence: BR)
  Receive Date: 20200812
  Receipt Date: 20200812
  Transmission Date: 20201103
  Serious: Yes (Hospitalization, Other)
  Sender: FDA-Public Use
  Company Number: BR-SUN PHARMACEUTICAL INDUSTRIES LTD-2019R1-218900

PATIENT
  Age: 30 Year
  Sex: Male

DRUGS (1)
  1. PROPYLTHIOURACIL. [Suspect]
     Active Substance: PROPYLTHIOURACIL
     Indication: BASEDOW^S DISEASE
     Dosage: 200 MILLIGRAM, DAILY
     Route: 065

REACTIONS (2)
  - Pharyngotonsillitis [Unknown]
  - Agranulocytosis [Recovered/Resolved]
